FAERS Safety Report 21130906 (Version 1)
Quarter: 2022Q3

REPORT INFORMATION
  Report Type: Spontaneous
  Country: US (occurrence: US)
  Receive Date: 20220726
  Receipt Date: 20220726
  Transmission Date: 20221026
  Serious: Yes (Hospitalization, Other)
  Sender: FDA-Public Use
  Company Number: US-STRIDES ARCOLAB LIMITED-2022SP009407

PATIENT
  Age: 76 Year
  Sex: Male

DRUGS (12)
  1. OXYCODONE [Suspect]
     Active Substance: OXYCODONE
     Indication: Analgesic therapy
     Dosage: 10 MILLIGRAM, EVERY 4 HRS
     Route: 048
  2. FENTANYL [Suspect]
     Active Substance: FENTANYL
     Indication: Sedation
     Dosage: UNK
     Route: 065
  3. FENTANYL [Suspect]
     Active Substance: FENTANYL
     Indication: Analgesic therapy
  4. CLONIDINE [Suspect]
     Active Substance: CLONIDINE
     Indication: Analgesic therapy
     Dosage: 0.1 MILLIGRAM, TID
     Route: 065
  5. CLONIDINE [Suspect]
     Active Substance: CLONIDINE
     Dosage: 0.2 MILLIGRAM, TID
     Route: 065
  6. CLONIDINE [Suspect]
     Active Substance: CLONIDINE
     Dosage: 0.1 MILLIGRAM, TID
     Route: 065
  7. DEXMEDETOMIDINE [Suspect]
     Active Substance: DEXMEDETOMIDINE
     Indication: Sedation
     Dosage: UNK
     Route: 065
  8. DEXMEDETOMIDINE [Suspect]
     Active Substance: DEXMEDETOMIDINE
     Dosage: 1.4 MCG/KG/H
     Route: 065
  9. PROPOFOL [Concomitant]
     Active Substance: PROPOFOL
     Indication: Analgesic therapy
     Dosage: UNK
     Route: 065
  10. PROPOFOL [Concomitant]
     Active Substance: PROPOFOL
     Indication: Sedation
  11. GABAPENTIN [Concomitant]
     Active Substance: GABAPENTIN
     Indication: Analgesic therapy
     Dosage: 100 MILLIGRAM, TID
     Route: 065
  12. ACETAMINOPHEN [Concomitant]
     Active Substance: ACETAMINOPHEN
     Indication: Analgesic therapy
     Dosage: UNK
     Route: 065

REACTIONS (2)
  - Intestinal pseudo-obstruction [Recovered/Resolved]
  - Hypotension [Recovered/Resolved]
